FAERS Safety Report 11691036 (Version 2)
Quarter: 2017Q3

REPORT INFORMATION
  Report Type: Spontaneous
  Country: TR (occurrence: TR)
  Receive Date: 20151102
  Receipt Date: 20170712
  Transmission Date: 20171127
  Serious: Yes (Hospitalization, Congenital Anomaly, Other)
  Sender: FDA-Public Use
  Company Number: TR-GLAXOSMITHKLINE-TR2015GSK156537

PATIENT
  Sex: Female

DRUGS (2)
  1. LAMOTRIGINE. [Suspect]
     Active Substance: LAMOTRIGINE
     Dosage: TAPERED
     Route: 015
  2. LAMOTRIGINE. [Suspect]
     Active Substance: LAMOTRIGINE
     Indication: EPILEPSY
     Dosage: 500 MG, QD
     Route: 015

REACTIONS (5)
  - Cardiac murmur functional [Unknown]
  - Foetal exposure during pregnancy [Unknown]
  - Pulmonary hypertension [Unknown]
  - Ventricular septal defect [Unknown]
  - Coarctation of the aorta [Unknown]
